FAERS Safety Report 20381490 (Version 5)
Quarter: 2022Q1

REPORT INFORMATION
  Report Type: Report from Study
  Country: FI (occurrence: None)
  Receive Date: 20220127
  Receipt Date: 20220217
  Transmission Date: 20220424
  Serious: Yes (Life-Threatening, Hospitalization)
  Sender: FDA-Public Use
  Company Number: FI-ROCHE-3007181

PATIENT
  Age: 60 Year
  Sex: Female
  Weight: 89.1 kg

DRUGS (14)
  1. PLACEBO [Suspect]
     Active Substance: UNSPECIFIED INGREDIENT
     Indication: Primary progressive multiple sclerosis
     Dosage: NEXT DOSES OF OCRELIZUMAB WERE RECEIVED ON 25/OCT/2011, 27/MAR/2012, 10/APR/2012, 10/SEP/2012, 24/SE
     Route: 042
     Dates: start: 20111011, end: 20151130
  2. OCRELIZUMAB [Suspect]
     Active Substance: OCRELIZUMAB
     Indication: Primary progressive multiple sclerosis
     Dosage: NEXT DOSES OF OCRELIZUMAB WERE RECEIVED ON 17/MAY/2016, 31/MAY/2016, 27/OCT/2016, 10/NOV/2016,  05/M
     Route: 042
     Dates: start: 20151201, end: 20151201
  3. CETIRIZINE HYDROCHLORIDE [Concomitant]
     Active Substance: CETIRIZINE HYDROCHLORIDE
     Dosage: 04/SEP/2019, 06/FEB/2020, 07/JAN/2021, 16/JUN/2021, 30/JUL/2020
  4. CETIRIZINE HYDROCHLORIDE [Concomitant]
     Active Substance: CETIRIZINE HYDROCHLORIDE
     Dosage: DOSES OF RECEIVED ON 25/OCT/2011, 27/MAR/2012, 10/APR/2012, 10/SEP/2012, 24/SEP/2012,  25/FEB/2013,
  5. METHYLPREDNISOLONE [Concomitant]
     Active Substance: METHYLPREDNISOLONE
     Dosage: DOSES OF RECEIVED ON 25/OCT/2011, 27/MAR/2012, 10/APR/2012, 10/SEP/2012, 24/SEP/2012,  25/FEB/2013,
  6. ACETAMINOPHEN [Concomitant]
     Active Substance: ACETAMINOPHEN
     Dosage: 04/SEP/2018, 06/FEB/2020, 07/JAN/2021, 16/JUN/2021, 24/NOV/2021, 26/MAR/2018, 30/JUL/2020
  7. ACETAMINOPHEN [Concomitant]
     Active Substance: ACETAMINOPHEN
     Dosage: DOSES OF RECEIVED ON 25/OCT/2011, 27/MAR/2012, 10/APR/2012, 10/SEP/2012, 24/SEP/2012,  25/FEB/2013,
  8. FEMOSTAN [Concomitant]
     Dates: start: 1990
  9. FISH OIL [Concomitant]
     Active Substance: FISH OIL
  10. NORVASC [Concomitant]
     Active Substance: AMLODIPINE BESYLATE
     Dates: start: 20180212
  11. TIZANIDINE [Concomitant]
     Active Substance: TIZANIDINE
     Dates: start: 2008, end: 201506
  12. TIZANIDINE [Concomitant]
     Active Substance: TIZANIDINE
     Dates: start: 201506, end: 201806
  13. TIZANIDINE [Concomitant]
     Active Substance: TIZANIDINE
     Dates: start: 201806
  14. AMITRIPTYLINE HYDROCHLORIDE [Concomitant]
     Active Substance: AMITRIPTYLINE HYDROCHLORIDE
     Dates: start: 2010

REACTIONS (1)
  - Post procedural infection [Recovered/Resolved]

NARRATIVE: CASE EVENT DATE: 20220103
